FAERS Safety Report 5362290-0 (Version None)
Quarter: 2007Q2

REPORT INFORMATION
  Report Type: 
  Country: None (occurrence: None)
  Receive Date: 20070619
  Receipt Date: 20070614
  Transmission Date: 20071010
  Serious: Yes (Death)
  Sender: FDA-Public Use
  Company Number: A0656626A

PATIENT
  Age: 82 Year
  Sex: Male

DRUGS (4)
  1. ADVAIR DISKUS 100/50 [Suspect]
     Indication: LUNG DISORDER
     Dosage: 1PUFF TWICE PER DAY
     Route: 055
  2. PROVENTIL-HFA [Concomitant]
  3. VIOXX [Concomitant]
  4. CONCURRENT MEDICATIONS [Concomitant]

REACTIONS (2)
  - DEATH [None]
  - MALAISE [None]
